FAERS Safety Report 8042261-6 (Version None)
Quarter: 2012Q1

REPORT INFORMATION
  Report Type: 
  Country: None (occurrence: None)
  Receive Date: 20120112
  Receipt Date: 20120110
  Transmission Date: 20120608
  Serious: Yes (Hospitalization)
  Sender: FDA-Public Use
  Company Number: US-ROCHE-1015856

PATIENT
  Sex: Female

DRUGS (4)
  1. TELAPREVIR [Suspect]
     Indication: HEPATITIS C
     Dates: start: 20111012
  2. SOLU-MEDROL [Concomitant]
  3. PEGINTERFERON ALFA-2A [Suspect]
     Indication: HEPATITIS C
     Route: 042
     Dates: start: 20111012
  4. COPEGUS [Suspect]
     Indication: HEPATITIS C
     Dates: start: 20111012

REACTIONS (3)
  - PNEUMONIA [None]
  - SPINAL FRACTURE [None]
  - CARBON MONOXIDE POISONING [None]
